FAERS Safety Report 23702206 (Version 1)
Quarter: 2024Q2

REPORT INFORMATION
  Report Type: Other
  Country: DE (occurrence: DE)
  Receive Date: 20240403
  Receipt Date: 20240403
  Transmission Date: 20240715
  Serious: Yes (Other)
  Sender: FDA-Public Use
  Company Number: DE-HORIZON THERAPEUTICS-HZN-2024-003790

PATIENT

DRUGS (2)
  1. UPLIZNA [Suspect]
     Active Substance: INEBILIZUMAB-CDON
     Indication: Neuromyelitis optica spectrum disorder
     Dosage: 300 MG, EVERY 6 MONTHS
     Route: 042
     Dates: start: 202211, end: 202301
  2. METHOTREXATE [Suspect]
     Active Substance: METHOTREXATE
     Indication: Psoriasis
     Dosage: 10 MG, WEEKLY
     Route: 058

REACTIONS (3)
  - CD4 lymphocytes decreased [Recovered/Resolved]
  - Lymphopenia [Recovered/Resolved]
  - T-lymphocyte count decreased [Recovered/Resolved]
